FAERS Safety Report 7642848-6 (Version None)
Quarter: 2011Q3

REPORT INFORMATION
  Report Type: 
  Country: None (occurrence: None)
  Receive Date: 20110728
  Receipt Date: 20110719
  Transmission Date: 20111222
  Serious: Yes (Hospitalization)
  Sender: FDA-Public Use
  Company Number: IT-ASTRAZENECA-2011SE36927

PATIENT
  Age: 23767 Day
  Sex: Female

DRUGS (8)
  1. CRESTOR [Suspect]
     Indication: THROMBOSIS PROPHYLAXIS
     Route: 048
     Dates: start: 20110408, end: 20110614
  2. LANTUS [Concomitant]
  3. PLAVIX [Concomitant]
     Dates: start: 20090501
  4. LYRICA [Concomitant]
     Dates: start: 20090717
  5. INSULIN APIDRA [Concomitant]
  6. COLVER [Concomitant]
     Dates: start: 20090717
  7. OMEPRAZOLE [Concomitant]
  8. CRESTOR [Suspect]
     Indication: DIABETES MELLITUS
     Route: 048
     Dates: start: 20110408, end: 20110614

REACTIONS (2)
  - RHABDOMYOLYSIS [None]
  - RENAL FAILURE ACUTE [None]
